FAERS Safety Report 6084095-8 (Version None)
Quarter: 2009Q1

REPORT INFORMATION
  Report Type: 
  Country: None (occurrence: None)
  Receive Date: 20090217
  Receipt Date: 20090217
  Transmission Date: 20090719
  Serious: Yes (Hospitalization)
  Sender: FDA-Public Use
  Company Number: None

PATIENT
  Age: 64 Year
  Sex: Female
  Weight: 93.8946 kg

DRUGS (1)
  1. LISINOPRIL [Suspect]
     Indication: BLOOD PRESSURE
     Dosage: ONE A DAY
     Dates: start: 20090112, end: 20090209

REACTIONS (4)
  - IMPAIRED WORK ABILITY [None]
  - LARYNGEAL OEDEMA [None]
  - PHARYNGEAL OEDEMA [None]
  - SWOLLEN TONGUE [None]
